FAERS Safety Report 5082433-6 (Version None)
Quarter: 2006Q3

REPORT INFORMATION
  Report Type: 
  Country: None (occurrence: None)
  Receive Date: 20060817
  Receipt Date: 20060810
  Transmission Date: 20061208
  Serious: Yes (Other)
  Sender: FDA-Public Use
  Company Number: 457558

PATIENT
  Age: 74 Year
  Sex: Male

DRUGS (5)
  1. ARTIST [Suspect]
     Indication: ACUTE MYOCARDIAL INFARCTION
     Dosage: 1.25MG UNKNOWN
     Route: 048
     Dates: start: 20060620, end: 20060630
  2. PANALDINE [Suspect]
     Indication: CORONARY ARTERIAL STENT INSERTION
     Dosage: 200MG UNKNOWN
     Route: 048
     Dates: start: 20060619, end: 20060630
  3. OLMETEC [Concomitant]
     Route: 065
  4. BUFFERIN [Concomitant]
     Route: 065
  5. TAKEPRON [Concomitant]
     Route: 065

REACTIONS (1)
  - BLOOD CREATINE PHOSPHOKINASE INCREASED [None]
